FAERS Safety Report 18374533 (Version 1)
Quarter: 2020Q4

REPORT INFORMATION
  Report Type: Spontaneous
  Country: CN (occurrence: CN)
  Receive Date: 20201013
  Receipt Date: 20201013
  Transmission Date: 20210114
  Serious: Yes (Life-Threatening, Other)
  Sender: FDA-Public Use
  Company Number: CN-B.I. PHARMACEUTICALS,INC./RIDGEFIELD-2020-BI-054559

PATIENT
  Age: 74 Year
  Sex: Female
  Weight: 54.5 kg

DRUGS (1)
  1. PRADAXA [Suspect]
     Active Substance: DABIGATRAN ETEXILATE MESYLATE
     Indication: ANTICOAGULANT THERAPY
     Dosage: 1 DOSAGE FORM 2 IN 1 DAY
     Route: 048
     Dates: start: 20200923, end: 20200927

REACTIONS (6)
  - Haemoglobin decreased [Unknown]
  - Anaemia [Unknown]
  - Cardiac tamponade [Recovering/Resolving]
  - Urinary occult blood positive [Unknown]
  - Gastrointestinal haemorrhage [Recovering/Resolving]
  - Coagulopathy [Recovering/Resolving]

NARRATIVE: CASE EVENT DATE: 20200927
